FAERS Safety Report 8711324 (Version 2)
Quarter: 2012Q4

REPORT INFORMATION
  Report Type: Spontaneous
  Country: DE (occurrence: None)
  Receive Date: 20120720
  Receipt Date: 20120921
  Transmission Date: 20130627
  Serious: Yes (Other)
  Sender: FDA-Public Use
  Company Number: TPA2012A04495

PATIENT
  Age: 76 Year
  Sex: Female

DRUGS (1)
  1. FEBUXOSTAT [Suspect]
     Indication: HYPERURICAEMIA
     Route: 048
     Dates: start: 20120702, end: 20120704

REACTIONS (4)
  - Circulatory collapse [None]
  - Rash [None]
  - Tachycardia [None]
  - Dermatitis allergic [None]
